FAERS Safety Report 8327484-0 (Version None)
Quarter: 2012Q2

REPORT INFORMATION
  Report Type: 
  Country: None (occurrence: None)
  Receive Date: 20120502
  Receipt Date: 20120423
  Transmission Date: 20120825
  Serious: Yes (Hospitalization)
  Sender: FDA-Public Use
  Company Number: US-BAYER-2011-006813

PATIENT
  Age: 29 Year
  Sex: Female
  Weight: 61 kg

DRUGS (7)
  1. YAZ [Suspect]
     Indication: ORAL CONTRACEPTION
     Dosage: UNK
     Route: 048
     Dates: start: 20070713, end: 20080701
  2. PERCOCET [Concomitant]
  3. ETHINYL ESTRADIOL AND NORETHINDRONE [Concomitant]
     Dosage: UNK
     Dates: start: 20080701
  4. YASMIN [Suspect]
  5. NICODERM [Concomitant]
     Dosage: 21 MG
  6. IMITREX [Concomitant]
  7. IBUPROFEN [Concomitant]
     Dosage: 400 MG, UNK

REACTIONS (9)
  - EMOTIONAL DISTRESS [None]
  - ANXIETY [None]
  - DEEP VEIN THROMBOSIS [None]
  - PSYCHOLOGICAL TRAUMA [None]
  - PHLEBITIS SUPERFICIAL [None]
  - VARICOSE VEIN [None]
  - PAIN [None]
  - FEAR [None]
  - PULMONARY EMBOLISM [None]
